FAERS Safety Report 9304118 (Version 2)
Quarter: 2013Q4

REPORT INFORMATION
  Report Type: Spontaneous
  Country: GB (occurrence: GB)
  Receive Date: 20130522
  Receipt Date: 20131104
  Transmission Date: 20140711
  Serious: Yes (Death)
  Sender: FDA-Public Use
  Company Number: GB-PFIZER INC-2013155184

PATIENT
  Age: 27 Year
  Sex: Male

DRUGS (2)
  1. SILDENAFIL CITRATE [Suspect]
  2. AMBRISENTAN [Suspect]

REACTIONS (1)
  - Death [Fatal]
